FAERS Safety Report 17677917 (Version 1)
Quarter: 2020Q2

REPORT INFORMATION
  Report Type: Spontaneous
  Country: US (occurrence: US)
  Receive Date: 20200416
  Receipt Date: 20200416
  Transmission Date: 20200714
  Serious: Yes (Hospitalization, Other)
  Sender: FDA-Public Use
  Company Number: US-TAKEDA-2020TUS018269

PATIENT
  Sex: Male
  Weight: 68.03 kg

DRUGS (2)
  1. TRINTELLIX [Suspect]
     Active Substance: VORTIOXETINE HYDROBROMIDE
     Indication: ANXIETY
     Dosage: UNK
     Route: 065
  2. TRINTELLIX [Suspect]
     Active Substance: VORTIOXETINE HYDROBROMIDE
     Indication: DEPRESSION

REACTIONS (8)
  - Sepsis [Recovered/Resolved]
  - Abdominal discomfort [Recovered/Resolved]
  - Hospitalisation [Recovered/Resolved]
  - Organ failure [Recovered/Resolved]
  - Constipation [Recovered/Resolved]
  - Ulcer haemorrhage [Recovered/Resolved]
  - Pain [Recovered/Resolved]
  - Urinary retention [Recovered/Resolved]
